FAERS Safety Report 6766908-7 (Version None)
Quarter: 2010Q2

REPORT INFORMATION
  Report Type: 
  Country: None (occurrence: None)
  Receive Date: 20100611
  Receipt Date: 20100602
  Transmission Date: 20101027
  Serious: Yes (Hospitalization)
  Sender: FDA-Public Use
  Company Number: JP-CELGENEUS-087-50794-10040297

PATIENT
  Sex: Female

DRUGS (17)
  1. VIDAZA [Suspect]
     Indication: MYELODYSPLASTIC SYNDROME
     Route: 058
     Dates: start: 20100317, end: 20100323
  2. VIDAZA [Suspect]
     Dosage: UNKNOWN
     Route: 058
     Dates: start: 20080209
  3. SENNOSIDE [Concomitant]
     Indication: CONSTIPATION
     Route: 048
     Dates: start: 20080906
  4. VITAMEDIN [Concomitant]
     Indication: STOMATITIS
     Route: 048
     Dates: start: 20090703
  5. VITAMEDIN [Concomitant]
     Indication: PROPHYLAXIS
  6. LIPITOR [Concomitant]
     Indication: HYPERLIPIDAEMIA
     Route: 048
     Dates: start: 20090729
  7. ADONA [Concomitant]
     Indication: PROPHYLAXIS
     Route: 048
     Dates: start: 20090527
  8. ADONA [Concomitant]
     Indication: HAEMORRHAGE
  9. KENALOG [Concomitant]
     Indication: STOMATITIS
     Route: 061
     Dates: start: 20100331
  10. FIRSTCIN [Concomitant]
     Indication: DRUG USE FOR UNKNOWN INDICATION
     Dates: start: 20100402
  11. NEUTROGIN [Concomitant]
     Indication: DRUG USE FOR UNKNOWN INDICATION
     Route: 058
     Dates: start: 20100402, end: 20100412
  12. MINOPHAGEN [Concomitant]
     Indication: DRUG USE FOR UNKNOWN INDICATION
     Route: 051
     Dates: start: 20100404, end: 20100415
  13. OXYGEN [Concomitant]
     Indication: DRUG USE FOR UNKNOWN INDICATION
     Dosage: 2L/MIN
     Route: 045
     Dates: start: 20100404
  14. OXYGEN [Concomitant]
     Dosage: 1L/MIN
     Route: 045
     Dates: start: 20100405, end: 20100415
  15. FAMOTIDINE [Concomitant]
     Indication: GASTRITIS PROPHYLAXIS
     Route: 048
     Dates: start: 20090708
  16. LASIX [Concomitant]
     Indication: DRUG USE FOR UNKNOWN INDICATION
     Route: 065
     Dates: start: 20100408
  17. BFLUID [Concomitant]
     Indication: DRUG USE FOR UNKNOWN INDICATION
     Route: 065
     Dates: start: 20100409, end: 20100415

REACTIONS (2)
  - PERICARDITIS [None]
  - SEPSIS [None]
